FAERS Safety Report 7117909-0 (Version None)
Quarter: 2010Q4

REPORT INFORMATION
  Report Type: 
  Country: None (occurrence: None)
  Receive Date: 20101118
  Receipt Date: 20101118
  Transmission Date: 20110411
  Serious: Yes (Other)
  Sender: FDA-Public Use
  Company Number: None

PATIENT
  Age: 36 Year
  Sex: Male
  Weight: 72.5755 kg

DRUGS (1)
  1. MUPIROCIN [Suspect]
     Indication: INFECTION PROPHYLAXIS
     Dosage: PEA SIZE AMOUNT 3X DAILY TOP
     Route: 061
     Dates: start: 20101112, end: 20101114

REACTIONS (2)
  - APPLICATION SITE PAIN [None]
  - APPLICATION SITE PRURITUS [None]
